FAERS Safety Report 10613442 (Version 1)
Quarter: 2014Q4

REPORT INFORMATION
  Report Type: Spontaneous
  Country: US (occurrence: US)
  Receive Date: 20141128
  Receipt Date: 20141128
  Transmission Date: 20150529
  Serious: Yes (Other)
  Sender: FDA-Public Use
  Company Number: US-RB-070689-14

PATIENT
  Age: 81 Year
  Sex: Female

DRUGS (1)
  1. MUCINEX MAXIMUM STRENGTH [Suspect]
     Active Substance: GUAIFENESIN
     Indication: PRODUCT USED FOR UNKNOWN INDICATION
     Dosage: TOOK 1 TABLET AT 10 A.M. AND 1 TABLET AT 8 P.M. ON 17-NOV-2014, 1 TABLET AT 3 P.M. ON 18-NOV-2014
     Route: 065
     Dates: start: 20141117

REACTIONS (3)
  - Inappropriate schedule of drug administration [Unknown]
  - Restlessness [Not Recovered/Not Resolved]
  - Insomnia [Unknown]

NARRATIVE: CASE EVENT DATE: 20141117
